FAERS Safety Report 8369409-8 (Version None)
Quarter: 2012Q2

REPORT INFORMATION
  Report Type: 
  Country: None (occurrence: None)
  Receive Date: 20120518
  Receipt Date: 20120516
  Transmission Date: 20120825
  Serious: Yes (Other)
  Sender: FDA-Public Use
  Company Number: NZ-PFIZER INC-2012108013

PATIENT
  Age: 62 Year
  Sex: Male
  Weight: 102 kg

DRUGS (4)
  1. VARENICLINE TARTRATE [Suspect]
     Indication: SMOKING CESSATION THERAPY
     Dosage: 1 MG, 2X/DAY
     Route: 048
  2. OLANZAPINE [Concomitant]
     Indication: SCHIZOPHRENIA
     Dosage: 5 MG, 1X/DAY AT NIGHT
     Route: 048
     Dates: start: 20100101
  3. CITALOPRAM HYDROBROMIDE [Concomitant]
     Indication: DEPRESSION
     Dosage: 20 MG, 1X/DAY IN THE MORNING
     Route: 048
     Dates: start: 20100101
  4. CLOZAPINE [Concomitant]
     Dosage: UNK

REACTIONS (3)
  - DELUSION [None]
  - ANXIETY [None]
  - HALLUCINATION, VISUAL [None]
